FAERS Safety Report 10914206 (Version 1)
Quarter: 2015Q1

REPORT INFORMATION
  Report Type: Spontaneous
  Country: US (occurrence: US)
  Receive Date: 20150313
  Receipt Date: 20150313
  Transmission Date: 20150721
  Serious: Yes (Death, Hospitalization, Other)
  Sender: FDA-Public Use
  Company Number: US-TAKEDA-2015MPI001163

PATIENT
  Age: 67 Year
  Sex: Male
  Weight: 71.1 kg

DRUGS (2)
  1. VELCADE [Suspect]
     Active Substance: BORTEZOMIB
     Indication: PLASMA CELL MYELOMA
     Dosage: UNK UNK, 2/WEEK
     Route: 058
     Dates: start: 20140919, end: 20141103
  2. KYPROLIS [Suspect]
     Active Substance: CARFILZOMIB
     Indication: PLASMA CELL MYELOMA
     Dosage: UNK
     Route: 065
     Dates: start: 20141125

REACTIONS (3)
  - Subdural haematoma [Unknown]
  - Anaemia [Unknown]
  - Death [Fatal]

NARRATIVE: CASE EVENT DATE: 20141120
